FAERS Safety Report 15475601 (Version 2)
Quarter: 2018Q4

REPORT INFORMATION
  Report Type: Spontaneous
  Country: BR (occurrence: BR)
  Receive Date: 20181008
  Receipt Date: 20181102
  Transmission Date: 20190205
  Serious: Yes (Other)
  Sender: FDA-Public Use
  Company Number: BR-ALLERGAN-1847932US

PATIENT
  Age: 64 Year
  Sex: Male

DRUGS (2)
  1. MESALAZINE UNK [Suspect]
     Active Substance: MESALAMINE
     Indication: CROHN^S DISEASE
     Dosage: ACTUAL: 4.8 G PER DAY
     Route: 065
  2. AZATHIOPRINE. [Suspect]
     Active Substance: AZATHIOPRINE
     Indication: CROHN^S DISEASE
     Dosage: ACTUAL: 2 MG/KG/DAY
     Route: 065

REACTIONS (6)
  - Gastrointestinal stenosis [Recovering/Resolving]
  - Iron deficiency anaemia [Recovering/Resolving]
  - Abdominal pain [Recovering/Resolving]
  - Arterial disorder [Recovering/Resolving]
  - Gastrointestinal mucosal disorder [Recovering/Resolving]
  - Peripheral swelling [Recovering/Resolving]
